FAERS Safety Report 9669998 (Version 1)
Quarter: 2013Q4

REPORT INFORMATION
  Report Type: Spontaneous
  Country: DE (occurrence: DE)
  Receive Date: 20131105
  Receipt Date: 20131105
  Transmission Date: 20140711
  Serious: Yes (Hospitalization, Other)
  Sender: FDA-Public Use
  Company Number: GXKR2013DE003443

PATIENT
  Sex: 0

DRUGS (4)
  1. LEVETIRACETAM [Suspect]
     Dosage: MATERNAL DOSE: 2250 [(1000-250-1000)MG/D ], 0.-37+3 GW
     Route: 064
  2. LAMOTRIGINE [Suspect]
     Dosage: MATERNAL DOSE: 400 [(200-0-200) MG/D ], 0.-37+3 GW
     Route: 064
  3. SUFENTANIL [Concomitant]
     Dosage: MATERNAL DOSE: UKN, AT 37+3 GW
     Route: 064
     Dates: start: 20081020, end: 20081020
  4. ROPIVACAIN HCL [Concomitant]
     Dosage: MATERNAL DOSE: UKN, AT 37+3 GW
     Route: 064

REACTIONS (5)
  - Patent ductus arteriosus [Recovered/Resolved]
  - Agitation neonatal [Recovered/Resolved]
  - Portal vein thrombosis [Recovered/Resolved]
  - Feeding disorder neonatal [Recovered/Resolved]
  - Apnoea neonatal [Recovered/Resolved]
